FAERS Safety Report 5797473-9 (Version None)
Quarter: 2008Q2

REPORT INFORMATION
  Report Type: 
  Country: None (occurrence: None)
  Receive Date: 20080630
  Receipt Date: 20080620
  Transmission Date: 20081010
  Serious: Yes (Death)
  Sender: FDA-Public Use
  Company Number: GXKR2008US05717

PATIENT
  Age: 57 Year
  Sex: Male

DRUGS (1)
  1. METHADONE HCL [Suspect]
     Indication: PAIN MANAGEMENT
     Dosage: AVE 80 MG, QD

REACTIONS (1)
  - DRUG LEVEL ABOVE THERAPEUTIC [None]
